FAERS Safety Report 18285046 (Version 1)
Quarter: 2020Q3

REPORT INFORMATION
  Report Type: Spontaneous
  Country: GB (occurrence: GB)
  Receive Date: 20200918
  Receipt Date: 20200918
  Transmission Date: 20201103
  Serious: Yes (Hospitalization, Other)
  Sender: FDA-Public Use
  Company Number: GB-PFIZER INC-2020358250

PATIENT
  Age: 64 Year
  Sex: Male

DRUGS (1)
  1. DOCETAXEL. [Suspect]
     Active Substance: DOCETAXEL
     Indication: PROSTATE CANCER
     Dosage: CYCLICAL;75 MG/M2 QCY
     Route: 042
     Dates: start: 20170321, end: 20170321

REACTIONS (4)
  - Neutropenic sepsis [Recovering/Resolving]
  - Pyrexia [Unknown]
  - Tonsillitis [Unknown]
  - Oropharyngeal pain [Recovering/Resolving]
